FAERS Safety Report 12991044 (Version 1)
Quarter: 2016Q4

REPORT INFORMATION
  Report Type: Spontaneous
  Country: CH (occurrence: GB)
  Receive Date: 20161201
  Receipt Date: 20161201
  Transmission Date: 20170207
  Serious: Yes (Other)
  Sender: FDA-Public Use
  Company Number: CH-LPDUSPRD-20161067

PATIENT
  Age: 17 Year
  Sex: Male

DRUGS (12)
  1. NUTRITIONAL SUPPLEMENT [Concomitant]
     Active Substance: DIETARY SUPPLEMENT
  2. CIPROFLOXACINE [Concomitant]
     Active Substance: CIPROFLOXACIN
  3. METHYLPREDNISOLONE. [Concomitant]
     Active Substance: METHYLPREDNISOLONE
  4. PARACETAMOL [Concomitant]
     Active Substance: ACETAMINOPHEN
  5. INFLIXIMAB [Concomitant]
     Active Substance: INFLIXIMAB
  6. METRONIDAZOLE. [Concomitant]
     Active Substance: METRONIDAZOLE
  7. FERINJECT [Suspect]
     Active Substance: FERRIC CARBOXYMALTOSE
     Dosage: 450 MG IN 100 MG OF 0.9% NACL
     Route: 041
     Dates: start: 20161103, end: 20161103
  8. PREDNISOLONE. [Concomitant]
     Active Substance: PREDNISOLONE
  9. AZATHIOPRINE. [Concomitant]
     Active Substance: AZATHIOPRINE
  10. CEFTRIAXONE. [Concomitant]
     Active Substance: CEFTRIAXONE
  11. SODIUM CHLORIDE. [Concomitant]
     Active Substance: SODIUM CHLORIDE
  12. OMEPRAZOLE. [Concomitant]
     Active Substance: OMEPRAZOLE

REACTIONS (5)
  - Tachycardia [Unknown]
  - Tachypnoea [Unknown]
  - Urticaria [Unknown]
  - Skin warm [Unknown]
  - Erythema [Unknown]

NARRATIVE: CASE EVENT DATE: 20161103
